FAERS Safety Report 21492777 (Version 4)
Quarter: 2024Q3

REPORT INFORMATION
  Report Type: Report from Study
  Country: DE (occurrence: DE)
  Receive Date: 20221021
  Receipt Date: 20240702
  Transmission Date: 20241017
  Serious: No
  Sender: ROCHE
  Company Number: DE-ROCHE-3151343

PATIENT
  Age: 32 Year
  Sex: Female

DRUGS (2)
  1. OCREVUS [Suspect]
     Active Substance: OCRELIZUMAB
     Indication: Relapsing-remitting multiple sclerosis
     Dosage: NEXT DOSE WAS RECEIVED ON 22/JUL/2022
     Route: 042
     Dates: start: 20220707
  2. OCREVUS [Suspect]
     Active Substance: OCRELIZUMAB
     Route: 042

REACTIONS (10)
  - Sensory disturbance [Recovered/Resolved]
  - Heart rate increased [Recovered/Resolved]
  - COVID-19 [Recovered/Resolved]
  - Parosmia [Recovered/Resolved]
  - Taste disorder [Recovered/Resolved]
  - Influenza like illness [Recovered/Resolved]
  - Oropharyngeal pain [Recovered/Resolved]
  - Nasopharyngitis [Recovered/Resolved]
  - Depression [Unknown]
  - Anxiety disorder [Unknown]

NARRATIVE: CASE EVENT DATE: 20220707
